FAERS Safety Report 13695716 (Version 1)
Quarter: 2017Q2

REPORT INFORMATION
  Report Type: Report from Study
  Country: AU (occurrence: AU)
  Receive Date: 20170627
  Receipt Date: 20170627
  Transmission Date: 20170830
  Serious: Yes (Hospitalization, Other)
  Sender: FDA-Public Use
  Company Number: AU-REGENERON PHARMACEUTICALS, INC.-2017-17565

PATIENT

DRUGS (1)
  1. EYLEA [Suspect]
     Active Substance: AFLIBERCEPT
     Indication: RETINAL VEIN OCCLUSION
     Dosage: UNK, Q4WK
     Route: 031
     Dates: start: 20121201

REACTIONS (3)
  - Thrombosis [Unknown]
  - Eye haemorrhage [Unknown]
  - Cataract [Unknown]

NARRATIVE: CASE EVENT DATE: 2017
